FAERS Safety Report 10914736 (Version 1)
Quarter: 2015Q1

REPORT INFORMATION
  Report Type: Spontaneous
  Country: US (occurrence: US)
  Receive Date: 20150313
  Receipt Date: 20150313
  Transmission Date: 20150721
  Serious: Yes (Other)
  Sender: FDA-Public Use
  Company Number: PHHY2015US027954

PATIENT
  Age: 38 Year
  Sex: Female

DRUGS (1)
  1. ACETYLSALICYLIC ACID [Suspect]
     Active Substance: ASPIRIN
     Indication: IMMUNE TOLERANCE INDUCTION
     Route: 065

REACTIONS (3)
  - Urticaria [Recovered/Resolved]
  - Asthma [Recovered/Resolved]
  - Hypersensitivity vasculitis [Recovered/Resolved]
